FAERS Safety Report 8296867-X (Version None)
Quarter: 2012Q2

REPORT INFORMATION
  Report Type: 
  Country: None (occurrence: None)
  Receive Date: 20120419
  Receipt Date: 20120410
  Transmission Date: 20120825
  Serious: Yes (Death, Hospitalization)
  Sender: FDA-Public Use
  Company Number: US-BIOGENIDEC-2012BI006830

PATIENT
  Age: 51 Year
  Sex: Female

DRUGS (10)
  1. ACIDOPHILUS [Concomitant]
  2. PROMETHAZINE [Concomitant]
  3. FEXOFENADINE [Concomitant]
  4. SEROQUEL [Concomitant]
  5. ZOLPIDEM [Concomitant]
  6. BACLOFEN [Concomitant]
  7. EFFEXOR XR [Concomitant]
  8. TYSABRI [Suspect]
     Indication: MULTIPLE SCLEROSIS
     Route: 042
     Dates: start: 20100527, end: 20120111
  9. LISINOPRIL AND HYDROCHLOROTHIAZIDE [Concomitant]
  10. ALPRAZOLAM [Concomitant]

REACTIONS (4)
  - INTESTINAL PERFORATION [None]
  - INFECTIOUS PERITONITIS [None]
  - MENTAL DISORDER [None]
  - DEATH [None]
